FAERS Safety Report 19063515 (Version 1)
Quarter: 2021Q1

REPORT INFORMATION
  Report Type: Spontaneous
  Country: ID (occurrence: ID)
  Receive Date: 20210326
  Receipt Date: 20210326
  Transmission Date: 20210420
  Serious: Yes (Other)
  Sender: FDA-Public Use
  Company Number: ID-VISTAPHARM, INC.-VER202103-000997

PATIENT
  Age: 40 Year
  Sex: Female

DRUGS (3)
  1. MYCOPHENOLATE MOFETIL, USP [Suspect]
     Active Substance: MYCOPHENOLATE MOFETIL
     Indication: PSORIASIS
     Dosage: 2 GRAMS
  2. MYCOPHENOLATE MOFETIL, USP [Suspect]
     Active Substance: MYCOPHENOLATE MOFETIL
     Dosage: UNKNOWN (TAPERED DOWN GRADUALLY UNTIL 12 WEEKS)
  3. CYCLOSPORINE. [Concomitant]
     Active Substance: CYCLOSPORINE
     Indication: PSORIASIS
     Dosage: UNKNOWN

REACTIONS (1)
  - Drug-induced liver injury [Unknown]
